FAERS Safety Report 9444248 (Version 1)
Quarter: 2013Q3

REPORT INFORMATION
  Report Type: Spontaneous
  Country: JP (occurrence: JP)
  Receive Date: 20130807
  Receipt Date: 20130807
  Transmission Date: 20140515
  Serious: Yes (Hospitalization)
  Sender: FDA-Public Use
  Company Number: JP-MYLANLABS-2013S1016680

PATIENT
  Age: 77 Year
  Sex: Female

DRUGS (2)
  1. CARBOPLATIN [Suspect]
     Indication: LUNG ADENOCARCINOMA
     Dosage: AUC5
     Route: 041
  2. ALIMTA [Suspect]
     Indication: LUNG ADENOCARCINOMA
     Route: 041

REACTIONS (2)
  - Rheumatoid arthritis [Recovering/Resolving]
  - Interstitial lung disease [Recovering/Resolving]
